FAERS Safety Report 6638357-3 (Version None)
Quarter: 2010Q1

REPORT INFORMATION
  Report Type: 
  Country: None (occurrence: None)
  Receive Date: 20100317
  Receipt Date: 20100304
  Transmission Date: 20100710
  Serious: Yes (Other)
  Sender: FDA-Public Use
  Company Number: A0841355A

PATIENT
  Age: 49 Year
  Sex: Female
  Weight: 101.8 kg

DRUGS (1)
  1. TYKERB [Suspect]
     Indication: BREAST CANCER
     Dosage: 1250MG PER DAY
     Route: 048

REACTIONS (3)
  - ACNE [None]
  - BURNING SENSATION [None]
  - SYNCOPE [None]
